FAERS Safety Report 25902060 (Version 1)
Quarter: 2025Q4

REPORT INFORMATION
  Report Type: Spontaneous
  Country: CH (occurrence: CH)
  Receive Date: 20251009
  Receipt Date: 20251009
  Transmission Date: 20260118
  Serious: Yes (Other)
  Sender: TEVA
  Company Number: CH-TEVA-VS-3378805

PATIENT
  Age: 38 Year
  Sex: Male

DRUGS (10)
  1. TESTOSTERONE [Suspect]
     Active Substance: TESTOSTERONE
     Indication: Drug abuse
     Dosage: TESTOSTERONE PROPIONATE
     Route: 065
  2. NANDROLONE PHENPROPIONATE [Suspect]
     Active Substance: NANDROLONE PHENPROPIONATE
     Indication: Drug abuse
     Route: 065
  3. LETROZOLE [Concomitant]
     Active Substance: LETROZOLE
     Indication: Product used for unknown indication
     Route: 065
  4. LISINOPRIL [Concomitant]
     Active Substance: LISINOPRIL
     Indication: Hypertension
     Route: 065
  5. TAMOXIFEN [Concomitant]
     Active Substance: TAMOXIFEN
     Indication: Drug therapy
     Route: 065
  6. TAMOXIFEN [Concomitant]
     Active Substance: TAMOXIFEN
     Indication: Drug therapy
     Dosage: REDUCED TO 10 MG FOR 6 WEEKS
     Route: 065
  7. TESTOSTERONE [Suspect]
     Active Substance: TESTOSTERONE
     Indication: Drug therapy
     Dosage: TAPERED
     Route: 062
  8. TESTOSTERONE [Suspect]
     Active Substance: TESTOSTERONE
     Indication: Drug therapy
     Route: 062
  9. INSULIN NOS [Concomitant]
     Active Substance: INSULIN NOS
     Indication: Product used for unknown indication
     Route: 065
  10. SOMATROPIN [Concomitant]
     Active Substance: SOMATROPIN
     Indication: Product used for unknown indication
     Dosage: HUMAN GROWTH HORMONE
     Route: 065

REACTIONS (13)
  - Withdrawal syndrome [Unknown]
  - Hypogonadism [Unknown]
  - Drug abuse [Unknown]
  - Steroid dependence [Unknown]
  - Depressed mood [Unknown]
  - Toxic cardiomyopathy [Recovered/Resolved]
  - Insomnia [Unknown]
  - Skin irritation [Recovered/Resolved]
  - Asthenia [Unknown]
  - Anxiety [Unknown]
  - Hypertension [Recovered/Resolved]
  - Androgenetic alopecia [Unknown]
  - Libido decreased [Unknown]
